FAERS Safety Report 5463696-1 (Version None)
Quarter: 2007Q3

REPORT INFORMATION
  Report Type: 
  Country: None (occurrence: None)
  Receive Date: 20070920
  Receipt Date: 20070911
  Transmission Date: 20080115
  Serious: No
  Sender: FDA-Public Use
  Company Number: US-BOEHRINGER INGELHEIM PHARMACEUTICALS, INC.-2007-BP-16815BP

PATIENT
  Age: 47 Year
  Sex: Female

DRUGS (1)
  1. CATAPRES-TTS-1 [Suspect]
     Route: 061

REACTIONS (1)
  - DERMATITIS [None]
